FAERS Safety Report 10368127 (Version 1)
Quarter: 2014Q3

REPORT INFORMATION
  Report Type: Report from Study
  Country: BR (occurrence: BR)
  Receive Date: 20140807
  Receipt Date: 20140807
  Transmission Date: 20150326
  Serious: Yes (Other)
  Sender: FDA-Public Use
  Company Number: BR-PFIZER INC-2014220357

PATIENT
  Age: 35 Year
  Sex: Female

DRUGS (2)
  1. DICLOFENAC [Suspect]
     Active Substance: DICLOFENAC
  2. DIPYRONE [Suspect]
     Active Substance: DIPYRONE

REACTIONS (1)
  - Type I hypersensitivity [Unknown]
